FAERS Safety Report 24753491 (Version 1)
Quarter: 2024Q4

REPORT INFORMATION
  Report Type: Report from Study
  Country: US (occurrence: US)
  Receive Date: 20241219
  Receipt Date: 20241219
  Transmission Date: 20250114
  Serious: Yes (Hospitalization)
  Sender: ITALFARMACO SPA
  Company Number: US-ITALFARMACO SPA-2167428

PATIENT
  Age: 66 Year
  Sex: Male
  Weight: 54.422 kg

DRUGS (17)
  1. TIGLUTIK [Suspect]
     Active Substance: RILUZOLE
     Indication: Amyotrophic lateral sclerosis
     Dates: start: 20240530
  2. LOPRESSOR [Concomitant]
     Active Substance: METOPROLOL TARTRATE
  3. SEROQUEL [Concomitant]
     Active Substance: QUETIAPINE FUMARATE
  4. PROSCAR [Concomitant]
     Active Substance: FINASTERIDE
  5. ENTRESTO [Concomitant]
     Active Substance: SACUBITRIL\VALSARTAN
  6. XANAX [Concomitant]
     Active Substance: ALPRAZOLAM
  7. FLOMAX [Concomitant]
     Active Substance: TAMSULOSIN HYDROCHLORIDE
  8. NORCO [Concomitant]
     Active Substance: ACETAMINOPHEN\HYDROCODONE BITARTRATE
  9. DESYREL [Concomitant]
     Active Substance: TRAZODONE HYDROCHLORIDE
  10. BACTRIM [Concomitant]
     Active Substance: SULFAMETHOXAZOLE\TRIMETHOPRIM
  11. BUSPAR [Concomitant]
     Active Substance: BUSPIRONE HYDROCHLORIDE
  12. PROTONIX [Concomitant]
     Active Substance: PANTOPRAZOLE SODIUM
  13. TYLENOL ARTHRITIS PAIN [Concomitant]
     Active Substance: ACETAMINOPHEN
  14. MUCINEX [Concomitant]
     Active Substance: GUAIFENESIN
  15. FERROUS SULFATE [Concomitant]
     Active Substance: FERROUS SULFATE
  16. PACERONE [Concomitant]
     Active Substance: AMIODARONE HYDROCHLORIDE
  17. IPRATROPIUM BROMIDE AND ALBUTEROL SULFATE [Concomitant]
     Active Substance: ALBUTEROL SULFATE\IPRATROPIUM BROMIDE

REACTIONS (3)
  - Urinary tract infection [Recovering/Resolving]
  - Haematological infection [Recovering/Resolving]
  - Respiratory tract infection [Recovering/Resolving]
